FAERS Safety Report 4313365-6 (Version None)
Quarter: 2004Q1

REPORT INFORMATION
  Report Type: 
  Country: None (occurrence: None)
  Receive Date: 20040304
  Receipt Date: 20040224
  Transmission Date: 20041129
  Serious: Yes (Other)
  Sender: FDA-Public Use
  Company Number: 2004013347

PATIENT
  Age: 75 Year
  Sex: Female

DRUGS (2)
  1. LIPITOR [Suspect]
     Indication: HYPERCHOLESTEROLAEMIA
     Dosage: 10 MG (DAILY), ORAL
     Route: 048
     Dates: start: 20010629
  2. INSULIN HUMAN (INSULIN HUMAN) [Suspect]
     Indication: BLOOD GLUCOSE INCREASED
     Dates: start: 20040202

REACTIONS (3)
  - BLOOD GLUCOSE INCREASED [None]
  - DIABETIC HYPEROSMOLAR COMA [None]
  - FACE OEDEMA [None]
